FAERS Safety Report 16847260 (Version 3)
Quarter: 2019Q4

REPORT INFORMATION
  Report Type: Spontaneous
  Country: BE (occurrence: BE)
  Receive Date: 20190924
  Receipt Date: 20191108
  Transmission Date: 20200122
  Serious: Yes (Death, Other)
  Sender: FDA-Public Use
  Company Number: PHHY2019BE220993

PATIENT
  Age: 69 Year
  Sex: Female

DRUGS (4)
  1. TAFINLAR [Suspect]
     Active Substance: DABRAFENIB MESYLATE
     Indication: NEOPLASM PROGRESSION
     Dosage: 150 MG, BID (2 TIMES A DAY)
     Route: 065
     Dates: start: 201809
  2. IPILIMUMAB [Concomitant]
     Active Substance: IPILIMUMAB
     Indication: IMMUNOCHEMOTHERAPY
     Dosage: UNK
     Route: 065
     Dates: start: 20180523
  3. MEKINIST [Suspect]
     Active Substance: TRAMETINIB DIMETHYL SULFOXIDE
     Indication: NEOPLASM PROGRESSION
     Dosage: 2 MG, QD
     Route: 065
     Dates: start: 201809
  4. NIVOLUMAB [Concomitant]
     Active Substance: NIVOLUMAB
     Indication: IMMUNOCHEMOTHERAPY
     Dosage: UNK
     Route: 065
     Dates: start: 20180523

REACTIONS (5)
  - Pulmonary hilum mass [Unknown]
  - Disease progression [Unknown]
  - Lymphadenopathy [Unknown]
  - Death [Fatal]
  - Metastatic neoplasm [Unknown]

NARRATIVE: CASE EVENT DATE: 2019
